FAERS Safety Report 5512194-5 (Version None)
Quarter: 2007Q4

REPORT INFORMATION
  Report Type: 
  Country: None (occurrence: None)
  Receive Date: 20071112
  Receipt Date: 20071029
  Transmission Date: 20080405
  Serious: Yes (Hospitalization, Other)
  Sender: FDA-Public Use
  Company Number: PHHO2007JP18120

PATIENT
  Age: 59 Year
  Sex: Female

DRUGS (7)
  1. VOLTAREN [Suspect]
     Indication: RHEUMATOID ARTHRITIS
     Route: 054
     Dates: end: 20071003
  2. MOBIC [Suspect]
     Indication: RHEUMATOID ARTHRITIS
     Dosage: 10 MG, QD
     Route: 048
     Dates: end: 20071003
  3. PREDNISOLONE [Concomitant]
  4. KETOPROFEN [Concomitant]
  5. FAMOTIDINE [Concomitant]
  6. LIPITOR [Concomitant]
  7. PURSENNIDE [Concomitant]

REACTIONS (7)
  - DIARRHOEA [None]
  - FAECES DISCOLOURED [None]
  - GASTRIC ULCER HAEMORRHAGE [None]
  - GASTROINTESTINAL INFECTION [None]
  - HAEMOGLOBIN DECREASED [None]
  - HAEMOPTYSIS [None]
  - PYREXIA [None]
